FAERS Safety Report 23229910 (Version 1)
Quarter: 2023Q4

REPORT INFORMATION
  Report Type: Spontaneous
  Country: US (occurrence: US)
  Receive Date: 20231127
  Receipt Date: 20231127
  Transmission Date: 20240109
  Serious: Yes (Other)
  Sender: FDA-Public Use
  Company Number: US-AstraZeneca-2023A263340

PATIENT
  Sex: Male
  Weight: 77.599 kg

DRUGS (24)
  1. BUDESONIDE [Suspect]
     Active Substance: BUDESONIDE
     Indication: Product used for unknown indication
     Route: 055
  2. TYVASO [Suspect]
     Active Substance: TREPROSTINIL
     Indication: Pulmonary arterial hypertension
     Dosage: FREQUENCY: QID, 12 BREATHS?DAILY DOSE: 288 MICROGRAM
     Route: 055
     Dates: start: 20170303
  3. TYVASO DPI [Suspect]
     Active Substance: TREPROSTINIL
     Indication: Pulmonary arterial hypertension
     Dosage: FREQUENCY: QID?DAILY DOSE: 256 MICROGRAM
     Dates: start: 20230306
  4. TYLENOL [Suspect]
     Active Substance: ACETAMINOPHEN
  5. PANTOPRAZOLE SODIUM [Suspect]
     Active Substance: PANTOPRAZOLE SODIUM
  6. LETAIRIS [Concomitant]
     Active Substance: AMBRISENTAN
  7. SILDENAFIL CITRATE [Concomitant]
     Active Substance: SILDENAFIL CITRATE
  8. AMBRISENTAN [Concomitant]
     Active Substance: AMBRISENTAN
  9. DUREZOL [Concomitant]
     Active Substance: DIFLUPREDNATE
  10. IMODIUM A-D [Concomitant]
     Active Substance: LOPERAMIDE HYDROCHLORIDE
  11. ALLEGRA ALLERGY [Concomitant]
     Active Substance: FEXOFENADINE HYDROCHLORIDE
  12. VITAMIN D3 [Concomitant]
     Active Substance: CHOLECALCIFEROL
  13. AMOXICILLIN [Concomitant]
     Active Substance: AMOXICILLIN
  14. FLUTICASONE PROPIONATE [Concomitant]
     Active Substance: FLUTICASONE PROPIONATE
  15. CALCIUM [Concomitant]
     Active Substance: CALCIUM
  16. ASPIRIN [Concomitant]
     Active Substance: ASPIRIN
  17. FERROUS SULFATE [Concomitant]
     Active Substance: FERROUS SULFATE
  18. ZOFRAN [Concomitant]
     Active Substance: ONDANSETRON HYDROCHLORIDE
  19. PROLIA [Concomitant]
     Active Substance: DENOSUMAB
  20. LOPERAMIDE [Concomitant]
     Active Substance: LOPERAMIDE
  21. ADVIL [Concomitant]
     Active Substance: IBUPROFEN
  22. VITAMINS [Concomitant]
     Active Substance: VITAMINS
  23. GARLIC [Concomitant]
     Active Substance: GARLIC
  24. CORICIDIN HBP [Concomitant]
     Active Substance: ACETAMINOPHEN\CHLORPHENIRAMINE MALEATE

REACTIONS (31)
  - Autoimmune disorder [Unknown]
  - Oesophageal food impaction [Unknown]
  - Nephrolithiasis [Unknown]
  - Somnolence [Unknown]
  - Fatigue [Unknown]
  - Memory impairment [Unknown]
  - Illness [Unknown]
  - Eosinophilic oesophagitis [Unknown]
  - Food allergy [Unknown]
  - Weight increased [Unknown]
  - Post-traumatic stress disorder [Unknown]
  - Frustration tolerance decreased [Unknown]
  - Depressed mood [Unknown]
  - Cough [Unknown]
  - Feeling abnormal [Unknown]
  - Dysphagia [Unknown]
  - Dyspnoea [Unknown]
  - Seasonal allergy [Unknown]
  - Nausea [Unknown]
  - Vomiting [Unknown]
  - Liver function test abnormal [Unknown]
  - Urinary tract disorder [Unknown]
  - Flushing [Unknown]
  - Chest pain [Unknown]
  - Diarrhoea [Unknown]
  - Malaise [Unknown]
  - Rhinorrhoea [Unknown]
  - Epistaxis [Unknown]
  - Sensitivity to weather change [Unknown]
  - COVID-19 [Unknown]
  - Hypoacusis [Not Recovered/Not Resolved]

NARRATIVE: CASE EVENT DATE: 20230101
